FAERS Safety Report 5887831-6 (Version None)
Quarter: 2008Q3

REPORT INFORMATION
  Report Type: 
  Country: None (occurrence: None)
  Receive Date: 20080916
  Receipt Date: 20080903
  Transmission Date: 20090109
  Serious: Yes (Hospitalization)
  Sender: FDA-Public Use
  Company Number: 237976J08USA

PATIENT
  Age: 41 Year
  Sex: Male
  Weight: 99.7913 kg

DRUGS (4)
  1. REBIF [Suspect]
     Indication: MULTIPLE SCLEROSIS
     Dosage: 8.8 MCG, 3 IN 1 WEEKS, SUBCUTANEOUS
     Route: 058
     Dates: start: 20080319, end: 20080326
  2. CYMBALTA [Concomitant]
  3. UNSPECIFIED THYROID MEDICATION (THYROID THERAPY) [Concomitant]
  4. PRILOSEC OVER THE COUNTER (OMEPRAZOLE) [Concomitant]

REACTIONS (4)
  - ABASIA [None]
  - ABDOMINAL PAIN [None]
  - VIRAL INFECTION [None]
  - VISUAL IMPAIRMENT [None]
